FAERS Safety Report 5789449-2 (Version None)
Quarter: 2008Q2

REPORT INFORMATION
  Report Type: 
  Country: None (occurrence: None)
  Receive Date: 20080626
  Receipt Date: 20080624
  Transmission Date: 20081010
  Serious: Yes (Other)
  Sender: FDA-Public Use
  Company Number: US-GILEAD-2008-0017024

PATIENT
  Sex: Male

DRUGS (2)
  1. TRUVADA [Suspect]
  2. REYATAZ [Concomitant]

REACTIONS (2)
  - FANCONI SYNDROME ACQUIRED [None]
  - LOSS OF CONSCIOUSNESS [None]
